FAERS Safety Report 7471825-3 (Version None)
Quarter: 2011Q2

REPORT INFORMATION
  Report Type: 
  Country: None (occurrence: None)
  Receive Date: 20110511
  Receipt Date: 20100527
  Transmission Date: 20111010
  Serious: No
  Sender: FDA-Public Use
  Company Number: A0861700A

PATIENT
  Age: 64 Year
  Sex: Female

DRUGS (6)
  1. AREDIA [Concomitant]
  2. TYKERB [Suspect]
     Dosage: 1250MG PER DAY
     Route: 048
     Dates: start: 20100329
  3. RADIATION [Concomitant]
     Dates: start: 20100101
  4. XELODA [Concomitant]
  5. PREDNISONE [Concomitant]
  6. HERCEPTIN [Concomitant]

REACTIONS (2)
  - VOMITING [None]
  - FATIGUE [None]
